FAERS Safety Report 8760207 (Version 1)
Quarter: 2012Q4

REPORT INFORMATION
  Report Type: Spontaneous
  Country: US (occurrence: None)
  Receive Date: 20120828
  Receipt Date: 20120828
  Transmission Date: 20130627
  Serious: Yes (Other)
  Sender: FDA-Public Use
  Company Number: None

PATIENT
  Age: 82 Year
  Sex: Female
  Weight: 63.5 kg

DRUGS (1)
  1. LOSARTAN TAB 50 MG; APOTEX [Suspect]
     Indication: BLOOD PRESSURE HIGH
     Dosage: 1 tab daily daily take with water after breakfast
     Route: 048
     Dates: start: 20120731, end: 20120802

REACTIONS (3)
  - Diarrhoea [None]
  - Pruritus [None]
  - Urine output decreased [None]
